FAERS Safety Report 4957479-6 (Version None)
Quarter: 2006Q1

REPORT INFORMATION
  Report Type: 
  Country: None (occurrence: None)
  Receive Date: 20060328
  Receipt Date: 20060328
  Transmission Date: 20060701
  Serious: Yes (Other)
  Sender: FDA-Public Use
  Company Number: None

PATIENT
  Sex: Male
  Weight: 86.1834 kg

DRUGS (7)
  1. MINOCYCLINE HCL [Suspect]
     Indication: ACNE
     Dosage: 100 MG 2 X DAILY ORAL
     Route: 048
  2. MINOCYCLINE HCL [Suspect]
     Indication: ACNE
     Dosage: 100 MG 2 X DAILY ORAL
     Route: 048
  3. TAZORAC [Concomitant]
  4. .... [Concomitant]
  5. .... [Concomitant]
  6. ... [Concomitant]
  7. ... [Concomitant]

REACTIONS (7)
  - ACTIVITIES OF DAILY LIVING IMPAIRED [None]
  - EDUCATIONAL PROBLEM [None]
  - HEADACHE [None]
  - INTRACRANIAL PRESSURE INCREASED [None]
  - PAPILLOEDEMA [None]
  - TINNITUS [None]
  - VISUAL DISTURBANCE [None]
